FAERS Safety Report 8348204-X (Version None)
Quarter: 2012Q2

REPORT INFORMATION
  Report Type: 
  Country: None (occurrence: None)
  Receive Date: 20120509
  Receipt Date: 20120427
  Transmission Date: 20120825
  Serious: No
  Sender: FDA-Public Use
  Company Number: US-BAYER-2012-043894

PATIENT
  Age: 71 Year
  Sex: Female
  Weight: 77 kg

DRUGS (2)
  1. NAPROXEN (ALEVE) [Suspect]
     Indication: ARTHRITIS
     Dosage: 2 U, BID
     Route: 048
     Dates: start: 20111101
  2. NAPROXEN (ALEVE) [Suspect]
     Dosage: 2 DF, PRN
     Route: 048
     Dates: start: 20020101

REACTIONS (1)
  - NO ADVERSE EVENT [None]
